FAERS Safety Report 16403613 (Version 2)
Quarter: 2019Q4

REPORT INFORMATION
  Report Type: Spontaneous
  Country: US (occurrence: US)
  Receive Date: 20190607
  Receipt Date: 20191022
  Transmission Date: 20200122
  Serious: Yes (Other)
  Sender: FDA-Public Use
  Company Number: US-SUN PHARMACEUTICAL INDUSTRIES LTD-2019R1-210103

PATIENT
  Age: 2 Year
  Sex: Male

DRUGS (2)
  1. CARBOPLATIN. [Suspect]
     Active Substance: CARBOPLATIN
     Indication: NEUROBLASTOMA
     Dosage: UNK
     Route: 065
  2. MELPHALAN. [Suspect]
     Active Substance: MELPHALAN
     Indication: NEUROBLASTOMA
     Dosage: UNK
     Route: 065

REACTIONS (8)
  - Thrombotic microangiopathy [Unknown]
  - Pleural effusion [Unknown]
  - Pericardial effusion [Unknown]
  - Hypertension [Unknown]
  - Neurotoxicity [Unknown]
  - Respiratory failure [Unknown]
  - Haemolysis [Unknown]
  - Mental status changes [Unknown]
